FAERS Safety Report 6510183-5 (Version None)
Quarter: 2009Q4

REPORT INFORMATION
  Report Type: 
  Country: None (occurrence: None)
  Receive Date: 20091222
  Receipt Date: 20091216
  Transmission Date: 20100525
  Serious: Yes (Other)
  Sender: FDA-Public Use
  Company Number: GXKR2009BR13525

PATIENT
  Age: 21 Year
  Sex: Male

DRUGS (8)
  1. FUROSEMIDE (NGX) [Suspect]
     Dosage: 40 MG, QW2
     Route: 065
  2. NANDROLONE DECANOATE [Suspect]
     Dosage: 25 MG/DAY
     Route: 048
  3. GLUTAMIC ACID [Concomitant]
  4. TAURINE [Concomitant]
     Route: 065
  5. DISTILLED WATER [Concomitant]
  6. AMINO ACIDS [Concomitant]
  7. PROTEIN SUPPLEMENTS [Concomitant]
  8. HUMAN GROWTH HORMONE, RECOMBINANT [Concomitant]
     Dosage: 1200 IU, Q2MO
     Route: 030

REACTIONS (5)
  - DRUG ABUSE [None]
  - MACULAR OEDEMA [None]
  - RETINAL HAEMORRHAGE [None]
  - RETINAL VEIN OCCLUSION [None]
  - VISION BLURRED [None]
